FAERS Safety Report 23298785 (Version 1)
Quarter: 2023Q4

REPORT INFORMATION
  Report Type: Spontaneous
  Country: US (occurrence: US)
  Receive Date: 20231214
  Receipt Date: 20231214
  Transmission Date: 20240110
  Serious: Yes (Hospitalization)
  Sender: FDA-Public Use
  Company Number: US-STRIDES ARCOLAB LIMITED-2023SP015352

PATIENT

DRUGS (2)
  1. PROPRANOLOL [Suspect]
     Active Substance: PROPRANOLOL HYDROCHLORIDE
     Indication: Supraventricular tachycardia
     Dosage: 0.28 MILLIGRAM/KILOGRAM, EVERY 6 HRS, (TOTAL DAILY DOSE 1.1 MG/KG/DAY)
     Route: 048
  2. PROPRANOLOL [Suspect]
     Active Substance: PROPRANOLOL HYDROCHLORIDE
     Dosage: UNK (LATER, THE DOSE OF PROPRANOLOL WAS INCREASED)
     Route: 048

REACTIONS (2)
  - Hypoglycaemia neonatal [Unknown]
  - Off label use [Unknown]
